FAERS Safety Report 6794185-X (Version None)
Quarter: 2010Q2

REPORT INFORMATION
  Report Type: 
  Country: None (occurrence: None)
  Receive Date: 20100624
  Receipt Date: 20100210
  Transmission Date: 20101027
  Serious: Yes (Other)
  Sender: FDA-Public Use
  Company Number: JP-PFIZER INC-2010019141

PATIENT
  Age: 80 Year
  Sex: Female

DRUGS (3)
  1. AMPICILLIN SODIUM/SULBACTAM SODIUM [Suspect]
     Indication: PNEUMONIA
  2. CIPROFLOXACIN [Suspect]
  3. VANCOMYCIN HCL [Suspect]

REACTIONS (2)
  - LUNG DISORDER [None]
  - ORGANISING PNEUMONIA [None]
